FAERS Safety Report 4606717-8 (Version None)
Quarter: 2005Q1

REPORT INFORMATION
  Report Type: 
  Country: None (occurrence: None)
  Receive Date: 20050314
  Receipt Date: 20031202
  Transmission Date: 20050727
  Serious: Yes (Other)
  Sender: FDA-Public Use
  Company Number: 200320761US

PATIENT
  Sex: Female
  Weight: 81.4 kg

DRUGS (23)
  1. ARAVA [Suspect]
     Indication: RHEUMATOID ARTHRITIS
     Route: 048
     Dates: start: 19990101, end: 20020201
  2. PREDNISONE [Concomitant]
     Dosage: DOSE: NOT PROVIDED
  3. FLEXERIL [Concomitant]
     Dosage: DOSE: NOT PROVIDED
  4. DARVOCET-N 100 [Concomitant]
     Dosage: DOSE: NOT PROVIDED
  5. ALEVE [Concomitant]
     Dosage: DOSE: NOT PROVIDED
  6. AUGMENTIN '125' [Concomitant]
     Dosage: DOSE: NOT PROVIDED
  7. PHENYLPROPANOLAMINE HCL W/ GUAIFENESIN [Concomitant]
     Dosage: DOSE: NOT PROVIDED
  8. PHENERGAN EXPECTORANT W/ CODEINE [Concomitant]
     Dosage: DOSE: NOT PROVIDED
  9. POLY-HISTINE-D [Concomitant]
     Dosage: DOSE: NOT PROVIDED
  10. CLARITIN [Concomitant]
  11. TAMIFLU [Concomitant]
     Dosage: DOSE: NOT PROVIDED
  12. PROFEN II [Concomitant]
     Dosage: DOSE: NOT PROVIDED
  13. FLONASE [Concomitant]
     Dosage: DOSE: NOT PROVIDED
  14. ALLEGRA-D [Concomitant]
     Dosage: DOSE: 60/120
  15. FOLIC ACID [Concomitant]
     Dates: start: 20010501
  16. CELEBREX [Concomitant]
     Dates: start: 20010501
  17. METHOTREXATE [Concomitant]
     Dates: start: 20010501
  18. TYLENOL W/ CODEINE [Concomitant]
     Dosage: DOSE: NOT PROVIDED
  19. ACETAMINOPHEN AND HYDROCODONE BITARTRATE [Concomitant]
     Dosage: DOSE: NOT PROVIDED
  20. ZITHROMAX [Concomitant]
     Dosage: DOSE: NOT PROVIDED
  21. ZYRTEC [Concomitant]
  22. GENTAMICIN [Concomitant]
     Dosage: DOSE: NOT PROVIDED
  23. EVISTA [Concomitant]

REACTIONS (21)
  - ABDOMINAL PAIN [None]
  - ALANINE AMINOTRANSFERASE INCREASED [None]
  - ALOPECIA [None]
  - ASPARTATE AMINOTRANSFERASE INCREASED [None]
  - BILE DUCT STONE [None]
  - BILIARY CIRRHOSIS [None]
  - BLOOD ALKALINE PHOSPHATASE INCREASED [None]
  - BLOOD BILIRUBIN INCREASED [None]
  - CHILLS [None]
  - CHOLECYSTITIS [None]
  - CHOLELITHIASIS [None]
  - DERMATITIS ALLERGIC [None]
  - GASTROENTERITIS [None]
  - HEPATIC CIRRHOSIS [None]
  - HEPATIC STEATOSIS [None]
  - HEPATOCELLULAR DAMAGE [None]
  - LIVER FUNCTION TEST ABNORMAL [None]
  - NAUSEA [None]
  - PORTAL HYPERTENSION [None]
  - UTERINE LEIOMYOMA [None]
  - VOMITING [None]
